FAERS Safety Report 8564577-7 (Version None)
Quarter: 2012Q3

REPORT INFORMATION
  Report Type: 
  Country: None (occurrence: None)
  Receive Date: 20120803
  Receipt Date: 20120731
  Transmission Date: 20120928
  Serious: Yes (Disabling, Other)
  Sender: FDA-Public Use
  Company Number: BR-PFIZER INC-2012186663

PATIENT
  Age: 44 Year
  Sex: Female

DRUGS (1)
  1. ALPRAZOLAM [Suspect]
     Indication: PANIC DISORDER
     Dosage: 1 MG, 1X/DAY
     Dates: start: 19920101

REACTIONS (2)
  - SCLERODERMA [None]
  - CERVIX CARCINOMA [None]
